FAERS Safety Report 8949478 (Version 3)
Quarter: 2013Q1

REPORT INFORMATION
  Report Type: Report from Study
  Country: AT (occurrence: AT)
  Receive Date: 20121206
  Receipt Date: 20130211
  Transmission Date: 20140127
  Serious: Yes (Hospitalization, Other)
  Sender: FDA-Public Use
  Company Number: AT-CELGENEUS-009-21880-12080012

PATIENT
  Age: 75 Year
  Sex: Male

DRUGS (20)
  1. REVLIMID [Suspect]
     Indication: PLASMA CELL MYELOMA
     Route: 048
     Dates: start: 20120723, end: 20120805
  2. REVLIMID [Suspect]
     Route: 048
     Dates: start: 20120816
  3. REVLIMID [Suspect]
     Dosage: 10 MILLIGRAM
     Route: 048
     Dates: start: 20121112
  4. DEXAMETHASONE [Suspect]
     Indication: PLASMA CELL MYELOMA
     Route: 041
     Dates: start: 20120723, end: 20120731
  5. DEXAMETHASONE [Suspect]
     Route: 048
     Dates: start: 20120820
  6. DEXAMETHASONE [Suspect]
     Route: 048
     Dates: start: 20120723
  7. DEXAMETHASONE [Suspect]
     Route: 048
     Dates: start: 20120731
  8. DEXAMETHASONE [Suspect]
     Dosage: 40 MILLIGRAM
     Route: 048
     Dates: start: 20121112
  9. ELOTUZUMAB [Suspect]
     Indication: PLASMA CELL MYELOMA
     Route: 041
     Dates: start: 20120723, end: 20120731
  10. PANTOPRAZOLE [Concomitant]
     Indication: PRODUCT USED FOR UNKNOWN INDICATION
     Route: 065
     Dates: start: 2010
  11. FOSAMAX [Concomitant]
     Indication: PRODUCT USED FOR UNKNOWN INDICATION
     Route: 065
     Dates: start: 201206
  12. CAL D VITA [Concomitant]
     Indication: PRODUCT USED FOR UNKNOWN INDICATION
     Route: 065
     Dates: start: 201206
  13. TEMESTA [Concomitant]
     Indication: PRODUCT USED FOR UNKNOWN INDICATION
     Route: 065
     Dates: start: 201206
  14. MEXALEN [Concomitant]
     Indication: PRODUCT USED FOR UNKNOWN INDICATION
     Route: 065
     Dates: start: 201206
  15. MEXALEN [Concomitant]
     Route: 065
     Dates: start: 20120805
  16. LAEVOLAC [Concomitant]
     Indication: PRODUCT USED FOR UNKNOWN INDICATION
     Route: 065
     Dates: start: 201206
  17. SELOKEN [Concomitant]
     Indication: PRODUCT USED FOR UNKNOWN INDICATION
     Route: 065
  18. LISINOPRIL [Concomitant]
     Indication: PRODUCT USED FOR UNKNOWN INDICATION
     Route: 065
  19. AMLODIPINE [Concomitant]
     Indication: PRODUCT USED FOR UNKNOWN INDICATION
     Route: 065
  20. PROSCAR [Concomitant]
     Indication: PRODUCT USED FOR UNKNOWN INDICATION
     Route: 065

REACTIONS (2)
  - Pyrexia [Recovered/Resolved]
  - Dacryocystitis [Unknown]
